FAERS Safety Report 17621986 (Version 5)
Quarter: 2021Q2

REPORT INFORMATION
  Report Type: Report from Study
  Country: US (occurrence: US)
  Receive Date: 20200403
  Receipt Date: 20210420
  Transmission Date: 20210716
  Serious: Yes (Hospitalization)
  Sender: FDA-Public Use
  Company Number: US-VIIV HEALTHCARE LIMITED-US2020GSK058128

PATIENT
  Age: 18 Year
  Sex: Female
  Weight: 95.7 kg

DRUGS (18)
  1. RILPIVIRINE [Suspect]
     Active Substance: RILPIVIRINE
     Indication: HIV INFECTION
     Dosage: 25 MG, QD
     Route: 048
     Dates: start: 20191219
  2. KEFLEX [Concomitant]
     Active Substance: CEPHALEXIN
     Dosage: 1 DF, QID
  3. AUGMENTIN [Concomitant]
     Active Substance: AMOXICILLIN\CLAVULANATE POTASSIUM
     Dosage: 7 ML BY MOUTH EVERY 12 (TWELVE) HOURS.
     Route: 048
  4. DOCOSANOL [Concomitant]
     Active Substance: DOCOSANOL
     Dosage: 1 DF, QD
  5. IBUPROFEN. [Concomitant]
     Active Substance: IBUPROFEN
     Dosage: 1 DF PRN
  6. LOVENOX [Concomitant]
     Active Substance: ENOXAPARIN SODIUM
     Dosage: 40 MG, BID
     Route: 058
  7. AQUAPHOR TOPICAL (PETROLATUM) [Concomitant]
     Dosage: UNK, PRN
  8. EMTRICITABINE+TENOFOVIR ALAFENAMIDE [Suspect]
     Active Substance: EMTRICITABINE\TENOFOVIR ALAFENAMIDE FUMARATE
     Indication: HIV INFECTION
     Dosage: 200 MG, QD
     Route: 048
     Dates: start: 20191219
  9. SODIUM CHLORIDE 0.9% BOLUS [Concomitant]
     Dosage: 100 ML/HOURUNK
     Route: 042
  10. FLONASE [Concomitant]
     Active Substance: FLUTICASONE PROPIONATE
     Route: 061
  11. INDINAVIR [Concomitant]
     Active Substance: INDINAVIR
  12. ZYRTEC [Concomitant]
     Active Substance: CETIRIZINE HYDROCHLORIDE
     Dosage: 1 DF, QD
  13. ZOSYN [Concomitant]
     Active Substance: PIPERACILLIN SODIUM\TAZOBACTAM SODIUM
     Dosage: 3.375 G, QID
  14. MACROBID [Concomitant]
     Active Substance: NITROFURANTOIN\NITROFURANTOIN MONOHYDRATE
  15. KENALOG [Concomitant]
     Active Substance: TRIAMCINOLONE ACETONIDE
     Dosage: UNK, BID
     Route: 061
  16. DOLUTEGRAVIR [Suspect]
     Active Substance: DOLUTEGRAVIR
     Indication: HIV INFECTION
     Dosage: 50 MG, QD
     Route: 048
     Dates: start: 20191219
  17. ATAZANAVIR. [Concomitant]
     Active Substance: ATAZANAVIR
  18. VITAMIN D2 [Concomitant]
     Active Substance: ERGOCALCIFEROL
     Dosage: 1 DF, QD

REACTIONS (1)
  - Nephrolithiasis [Recovered/Resolved]

NARRATIVE: CASE EVENT DATE: 20200320
